FAERS Safety Report 9600580 (Version 1)
Quarter: 2013Q4

REPORT INFORMATION
  Report Type: Spontaneous
  Country: US (occurrence: US)
  Receive Date: 20131004
  Receipt Date: 20131004
  Transmission Date: 20140711
  Serious: No
  Sender: FDA-Public Use
  Company Number: US-AMGEN-USASP2013036093

PATIENT
  Age: 61 Year
  Sex: Female

DRUGS (8)
  1. ENBREL [Suspect]
     Indication: PRODUCT USED FOR UNKNOWN INDICATION
     Dosage: 50 MG, QWK
     Route: 058
     Dates: end: 20130430
  2. CYMBALTA [Concomitant]
     Dosage: 60 MG, UNK
  3. METHOTREXATE [Concomitant]
     Dosage: 2.5 MG, UNK
  4. FOLIC ACID [Concomitant]
     Dosage: UNK
  5. MULTIVITAMINS, PLAIN [Concomitant]
     Dosage: UNK
  6. CALCIUM [Concomitant]
     Dosage: 500 UNK, UNK
  7. GLUCOSAMINE AND CHONDROITIN [Concomitant]
     Dosage: UNK
  8. COLLAGEN [Concomitant]
     Dosage: UNK

REACTIONS (1)
  - Drug ineffective [Unknown]
